FAERS Safety Report 6021566-4 (Version None)
Quarter: 2008Q4

REPORT INFORMATION
  Report Type: 
  Country: None (occurrence: None)
  Receive Date: 20081229
  Receipt Date: 20081218
  Transmission Date: 20090506
  Serious: Yes (Other)
  Sender: FDA-Public Use
  Company Number: PHBS2002JP12175

PATIENT
  Age: 3 Year
  Sex: Male

DRUGS (6)
  1. SANDOSTATIN [Suspect]
     Indication: PANCREATITIS
     Dosage: 15-50 UG/DAY
     Route: 058
  2. SANDOSTATIN [Suspect]
     Dosage: 75 UG/D
  3. SANDOSTATIN [Suspect]
     Dosage: 20 UG/KG/DAY
  4. ANTINEOPLASTIC AGENTS [Concomitant]
  5. GABEXATE MESILATE [Concomitant]
     Dosage: 1 MG/KG PER HOUR
  6. ULINASTATIN [Concomitant]
     Dosage: 10,000 U/KG PER DAY

REACTIONS (14)
  - ABDOMINAL PAIN [None]
  - BLOOD AMYLASE INCREASED [None]
  - BLOOD CREATININE DECREASED [None]
  - BLOOD GLUCOSE INCREASED [None]
  - BLOOD SODIUM DECREASED [None]
  - BODY TEMPERATURE INCREASED [None]
  - C-REACTIVE PROTEIN INCREASED [None]
  - HAEMATOCRIT DECREASED [None]
  - HEART RATE INCREASED [None]
  - MEAN ARTERIAL PRESSURE INCREASED [None]
  - NEOPLASM RECURRENCE [None]
  - PANCREATIC PSEUDOCYST [None]
  - PANCREATIC PSEUDOCYST DRAINAGE [None]
  - WHITE BLOOD CELL COUNT DECREASED [None]
